FAERS Safety Report 18398567 (Version 1)
Quarter: 2020Q4

REPORT INFORMATION
  Report Type: Report from Study
  Country: US (occurrence: US)
  Receive Date: 20201019
  Receipt Date: 20201019
  Transmission Date: 20210114
  Serious: Yes (Other)
  Sender: FDA-Public Use
  Company Number: US-VERTEX PHARMACEUTICALS-2020-020168

PATIENT
  Age: 35 Year
  Sex: Female

DRUGS (35)
  1. BACTRIM [Concomitant]
     Active Substance: SULFAMETHOXAZOLE\TRIMETHOPRIM
  2. OMEPRAZOLE. [Concomitant]
     Active Substance: OMEPRAZOLE
  3. CITALOPRAM [Concomitant]
     Active Substance: CITALOPRAM HYDROBROMIDE
  4. ALBUTEROL [SALBUTAMOL] [Concomitant]
     Active Substance: ALBUTEROL
  5. FERROUS SULFATE. [Concomitant]
     Active Substance: FERROUS SULFATE
  6. MYCOPHENOLIC ACID. [Concomitant]
     Active Substance: MYCOPHENOLIC ACID
  7. NORTRIPTYLINE [Concomitant]
     Active Substance: NORTRIPTYLINE
  8. SODIUM CHLORIDE. [Concomitant]
     Active Substance: SODIUM CHLORIDE
  9. TRIKAFTA [Suspect]
     Active Substance: ELEXACAFTOR\IVACAFTOR\TEZACAFTOR
     Indication: CYSTIC FIBROSIS
     Dosage: 2 TABS (100 MG ELEXCAFTOR/50 MG TEZACAFTOR.75 MG IVACAFTOR) AM; 1 TAB (150 MG IVACAFTOR) PM
     Route: 048
     Dates: end: 20200927
  10. BENADRYL [Concomitant]
     Active Substance: DIPHENHYDRAMINE HYDROCHLORIDE
  11. LORAZEPAM. [Concomitant]
     Active Substance: LORAZEPAM
  12. PANCREAZE [Concomitant]
     Active Substance: PANCRELIPASE AMYLASE\PANCRELIPASE LIPASE\PANCRELIPASE PROTEASE
  13. VELPHORO [Concomitant]
     Active Substance: SUCROFERRIC OXYHYDROXIDE
  14. VITAMIN C [Concomitant]
     Active Substance: ASCORBIC ACID
  15. LEVOTHYROXINE. [Concomitant]
     Active Substance: LEVOTHYROXINE
  16. HYDRALAZINE [Concomitant]
     Active Substance: HYDRALAZINE HYDROCHLORIDE
  17. CALCIUM [Concomitant]
     Active Substance: CALCIUM
  18. GABAPENTINE [Concomitant]
     Active Substance: GABAPENTIN
  19. HUMALOG [Concomitant]
     Active Substance: INSULIN LISPRO
     Dosage: 100 U/ML
  20. MUCINEX [Concomitant]
     Active Substance: GUAIFENESIN
  21. VITAMIN D [ERGOCALCIFEROL] [Concomitant]
     Active Substance: ERGOCALCIFEROL
  22. ACYCLOVIR [ACICLOVIR] [Concomitant]
     Active Substance: ACYCLOVIR
  23. ZOFRAN [Concomitant]
     Active Substance: ONDANSETRON HYDROCHLORIDE
  24. FLUTICASONE. [Concomitant]
     Active Substance: FLUTICASONE
  25. LEVETIRACETAM. [Concomitant]
     Active Substance: LEVETIRACETAM
  26. LIDOCAINE. [Concomitant]
     Active Substance: LIDOCAINE
  27. METOCLOPRAMIDE. [Concomitant]
     Active Substance: METOCLOPRAMIDE
  28. PROGRAF [Concomitant]
     Active Substance: TACROLIMUS
  29. SEROQUEL [Concomitant]
     Active Substance: QUETIAPINE FUMARATE
  30. URSODIOL. [Concomitant]
     Active Substance: URSODIOL
  31. VITAMIN E [Concomitant]
     Active Substance: .ALPHA.-TOCOPHEROL
  32. COLISTIMETHATE [COLISTIMETHATE SODIUM] [Concomitant]
     Active Substance: COLISTIMETHATE SODIUM
  33. FIBERLAX [Concomitant]
  34. LOPRESSOR [Concomitant]
     Active Substance: METOPROLOL TARTRATE
  35. PREDNISONE. [Concomitant]
     Active Substance: PREDNISONE

REACTIONS (2)
  - Burning sensation [Recovered/Resolved]
  - Pain in extremity [Recovered/Resolved]

NARRATIVE: CASE EVENT DATE: 20200927
